FAERS Safety Report 9456151 (Version 5)
Quarter: 2013Q4

REPORT INFORMATION
  Report Type: Spontaneous
  Country: US (occurrence: US)
  Receive Date: 20130813
  Receipt Date: 20131021
  Transmission Date: 20140711
  Serious: Yes (Hospitalization, Other)
  Sender: FDA-Public Use
  Company Number: US-BAXTER-2013BAX031362

PATIENT
  Age: 67 Year
  Sex: Female

DRUGS (2)
  1. DIANEAL LOW CALCIUM [Suspect]
     Indication: PERITONEAL DIALYSIS
     Route: 033
  2. DIANEAL LOW CALCIUM [Suspect]
     Indication: PERITONEAL DIALYSIS
     Route: 033

REACTIONS (6)
  - Clostridium difficile infection [Recovering/Resolving]
  - Peritonitis [Recovered/Resolved]
  - Hypokalaemia [Recovering/Resolving]
  - Hypotension [Recovering/Resolving]
  - Peritonitis [Recovering/Resolving]
  - Peritoneal dialysis complication [Recovered/Resolved]
